FAERS Safety Report 4308170-0 (Version None)
Quarter: 2004Q1

REPORT INFORMATION
  Report Type: 
  Country: None (occurrence: None)
  Receive Date: 20040301
  Receipt Date: 20030718
  Transmission Date: 20041129
  Serious: No
  Sender: FDA-Public Use
  Company Number: US-BRISTOL-MYERS SQUIBB COMPANY-12331302

PATIENT
  Age: 61 Year
  Sex: Male
  Weight: 82 kg

DRUGS (7)
  1. GLUCOPHAGE [Suspect]
     Dosage: DURATION OF THERAPY:  ^THREE OR FOUR YEARS^
  2. PROPOXYPHENE HCL [Concomitant]
  3. HYDROCODONE [Concomitant]
  4. RANITIDINE [Concomitant]
  5. ACCURETIC [Concomitant]
  6. NEURONTIN [Concomitant]
  7. ACTOS [Concomitant]

REACTIONS (1)
  - DIARRHOEA [None]
